FAERS Safety Report 7177808-5 (Version None)
Quarter: 2010Q4

REPORT INFORMATION
  Report Type: 
  Country: None (occurrence: None)
  Receive Date: 20101220
  Receipt Date: 20101207
  Transmission Date: 20110411
  Serious: Yes (Hospitalization)
  Sender: FDA-Public Use
  Company Number: PHHY2010US66947

PATIENT
  Sex: Male
  Weight: 60 kg

DRUGS (9)
  1. ZOMETA [Suspect]
     Indication: OSTEOPENIA
     Dosage: 4 MG, UNK
     Dates: start: 20101005, end: 20101005
  2. TOPAMAX [Concomitant]
  3. BACLOFEN [Concomitant]
  4. SINGULAIR [Concomitant]
  5. NEXIUM [Concomitant]
  6. CLARITIN [Concomitant]
  7. QUAL [Concomitant]
  8. NASACORT [Concomitant]
  9. XOPENEX [Concomitant]

REACTIONS (1)
  - PYREXIA [None]
